FAERS Safety Report 10411896 (Version 1)
Quarter: 2014Q2

REPORT INFORMATION
  Report Type: Spontaneous
  Country: US (occurrence: None)
  Receive Date: 20140604
  Receipt Date: 20140604
  Transmission Date: 20141212
  Serious: No
  Sender: FDA-Public Use
  Company Number: 163-POMAL-14040772

PATIENT
  Age: 79 Year
  Sex: Male

DRUGS (5)
  1. POMALYST (POMALIDOMIDE) (CAPSULES) [Suspect]
     Indication: PLASMA CELL MYELOMA
     Route: 048
     Dates: start: 20130320
  2. AMOXICILLIN-POT CLAVULANATE [Concomitant]
  3. LEVOFLOXACIN [Concomitant]
  4. DSW (GLUCOSE) [Concomitant]
  5. DEXAMETHASONE [Concomitant]

REACTIONS (1)
  - Memory impairment [None]
